FAERS Safety Report 5715561-X (Version None)
Quarter: 2008Q2

REPORT INFORMATION
  Report Type: 
  Country: None (occurrence: None)
  Receive Date: 20080424
  Receipt Date: 20080411
  Transmission Date: 20081010
  Serious: Yes (Hospitalization, Other)
  Sender: FDA-Public Use
  Company Number: US-ROCHE-521759

PATIENT
  Sex: Male

DRUGS (5)
  1. ACCUTANE [Suspect]
     Indication: ACNE
     Route: 048
     Dates: start: 19930101, end: 19940101
  2. ACCUTANE [Suspect]
     Route: 048
     Dates: start: 19950120
  3. ACCUTANE [Suspect]
     Route: 048
     Dates: start: 19950908, end: 19960108
  4. ACCUTANE [Suspect]
     Route: 048
     Dates: start: 19960214, end: 19960501
  5. ADVIL [Concomitant]
     Indication: HEADACHE

REACTIONS (10)
  - ANXIETY [None]
  - COLITIS [None]
  - COLITIS ULCERATIVE [None]
  - DEPRESSION [None]
  - GASTROINTESTINAL DISORDER [None]
  - HALLUCINATION, AUDITORY [None]
  - INFLAMMATORY BOWEL DISEASE [None]
  - PHARYNGITIS [None]
  - PROCTITIS ULCERATIVE [None]
  - VASCULAR HEADACHE [None]
